FAERS Safety Report 5607420-8 (Version None)
Quarter: 2008Q1

REPORT INFORMATION
  Report Type: 
  Country: None (occurrence: None)
  Receive Date: 20080125
  Receipt Date: 20080116
  Transmission Date: 20080703
  Serious: Yes (Hospitalization, Other)
  Sender: FDA-Public Use
  Company Number: 2008BI001187

PATIENT
  Age: 61 Year
  Sex: Female
  Weight: 58.0604 kg

DRUGS (2)
  1. AVONEX [Suspect]
     Indication: MULTIPLE SCLEROSIS
     Dosage: 30 UG;QW;IM
     Route: 030
     Dates: start: 19980101, end: 20071226
  2. ATENOLOL [Concomitant]

REACTIONS (11)
  - ATRIAL FIBRILLATION [None]
  - CATARACT [None]
  - CEREBROVASCULAR ACCIDENT [None]
  - DIZZINESS [None]
  - HEART RATE IRREGULAR [None]
  - HYPERTENSION [None]
  - HYPERTHYROIDISM [None]
  - THYROID FUNCTION TEST ABNORMAL [None]
  - TINNITUS [None]
  - VISION BLURRED [None]
  - VISUAL FIELD DEFECT [None]
